FAERS Safety Report 11217707 (Version 1)
Quarter: 2015Q2

REPORT INFORMATION
  Report Type: Spontaneous
  Country: US (occurrence: None)
  Receive Date: 20150624
  Receipt Date: 20150624
  Transmission Date: 20150821
  Serious: Yes (Hospitalization)
  Sender: FDA-Public Use
  Company Number: None

PATIENT
  Age: 59 Year
  Sex: Female

DRUGS (13)
  1. COLACE [Concomitant]
     Active Substance: DOCUSATE SODIUM
  2. REMERON [Concomitant]
     Active Substance: MIRTAZAPINE
  3. COMPAZINE [Concomitant]
     Active Substance: PROCHLORPERAZINE MALEATE
  4. OXYCODONE [Concomitant]
     Active Substance: OXYCODONE
  5. CABOZANTINIB [Suspect]
     Active Substance: CABOZANTINIB
     Indication: BREAST CANCER METASTATIC
     Route: 048
     Dates: start: 20131203
  6. PRILOSEC (OMEPRAZOLE) [Concomitant]
     Active Substance: OMEPRAZOLE MAGNESIUM
  7. RITALIN [Concomitant]
     Active Substance: METHYLPHENIDATE HYDROCHLORIDE
  8. PREDNISONE. [Concomitant]
     Active Substance: PREDNISONE
  9. PROZAC (FLUOXETINE) [Concomitant]
  10. SYNTHROID [Concomitant]
     Active Substance: LEVOTHYROXINE SODIUM
  11. FULVESTRANT [Suspect]
     Active Substance: FULVESTRANT
     Indication: BREAST CANCER METASTATIC
     Route: 030
     Dates: start: 20131202
  12. IBUPROFEN. [Concomitant]
     Active Substance: IBUPROFEN
  13. VALIUM [Concomitant]
     Active Substance: DIAZEPAM

REACTIONS (3)
  - Colitis [None]
  - White blood cell count decreased [None]
  - Tachycardia [None]

NARRATIVE: CASE EVENT DATE: 20150621
